FAERS Safety Report 24135354 (Version 1)
Quarter: 2024Q3

REPORT INFORMATION
  Report Type: Other
  Country: JP (occurrence: JP)
  Receive Date: 20240725
  Receipt Date: 20240725
  Transmission Date: 20241017
  Serious: No
  Sender: Waylis
  Company Number: JP-WT-2024-02717

PATIENT
  Age: 48 Year
  Sex: Male

DRUGS (3)
  1. ESZOPICLONE [Suspect]
     Active Substance: ESZOPICLONE
     Indication: Depression
     Route: 048
  2. ESCITALOPRAM OXALATE [Concomitant]
     Active Substance: ESCITALOPRAM OXALATE
     Indication: Depression
     Route: 065
  3. ETHYL LOFLAZEPATE [Concomitant]
     Active Substance: ETHYL LOFLAZEPATE
     Indication: Depression
     Route: 065

REACTIONS (1)
  - Parapsoriasis [Recovering/Resolving]
